FAERS Safety Report 5710192-X (Version None)
Quarter: 2008Q2

REPORT INFORMATION
  Report Type: 
  Country: None (occurrence: None)
  Receive Date: 20080418
  Receipt Date: 20070618
  Transmission Date: 20081010
  Serious: No
  Sender: FDA-Public Use
  Company Number: US-ASTRAZENECA-2007UW28640

PATIENT
  Age: 69 Year
  Sex: Female
  Weight: 81.6 kg

DRUGS (4)
  1. TOPROL-XL [Suspect]
     Indication: HYPERTENSION
     Route: 048
  2. TOPROL-XL [Suspect]
     Indication: CARDIAC FAILURE CHRONIC
     Route: 048
  3. TYLENOL (CAPLET) [Concomitant]
  4. INSPRA [Concomitant]

REACTIONS (4)
  - FEELING ABNORMAL [None]
  - MUSCULAR WEAKNESS [None]
  - PALPITATIONS [None]
  - PHARMACEUTICAL PRODUCT COMPLAINT [None]
